FAERS Safety Report 8947990 (Version 2)
Quarter: 2013Q1

REPORT INFORMATION
  Report Type: Spontaneous
  Country: NL (occurrence: None)
  Receive Date: 20121127
  Receipt Date: 20121220
  Transmission Date: 20140127
  Serious: Yes (Other)
  Sender: FDA-Public Use
  Company Number: 2012-19803

PATIENT
  Age: 5 Year
  Sex: Female

DRUGS (2)
  1. IPRATROPIUM [Suspect]
     Indication: ASTHMA
     Dosage: RESPIRATORY
     Route: 055
  2. SALBUTAMOL (UNKNOWN) [Suspect]
     Indication: ASTHMA
     Dosage: RESPIRATORY
     Route: 055

REACTIONS (3)
  - Urinary hesitation [None]
  - Residual urine volume [None]
  - Drug effect decreased [None]
